FAERS Safety Report 5751121-2 (Version None)
Quarter: 2008Q2

REPORT INFORMATION
  Report Type: 
  Country: None (occurrence: None)
  Receive Date: 20080528
  Receipt Date: 20080516
  Transmission Date: 20081010
  Serious: Yes (Hospitalization)
  Sender: FDA-Public Use
  Company Number: US-ELI_LILLY_AND_COMPANY-US200805003428

PATIENT
  Sex: Female

DRUGS (1)
  1. EVISTA [Suspect]
     Dates: end: 20080401

REACTIONS (2)
  - HIP FRACTURE [None]
  - WRIST FRACTURE [None]
